FAERS Safety Report 12346577 (Version 3)
Quarter: 2017Q3

REPORT INFORMATION
  Report Type: Spontaneous
  Country: FR (occurrence: FR)
  Receive Date: 20160509
  Receipt Date: 20170731
  Transmission Date: 20171127
  Serious: Yes (Other)
  Sender: FDA-Public Use
  Company Number: FR-ACORDA-ACO_123572_2016

PATIENT
  Age: 51 Year
  Sex: Female

DRUGS (2)
  1. QUTENZA [Suspect]
     Active Substance: CAPSAICIN
     Indication: NEURALGIA
     Dosage: 1 DF (1 PATCH), UNKNOWN FREQ.
     Route: 003
     Dates: start: 20160310, end: 20160310
  2. QUTENZA [Suspect]
     Active Substance: CAPSAICIN
     Dosage: UNK, UNKNOWN FREQ.
     Route: 003
     Dates: start: 20160407, end: 20160407

REACTIONS (7)
  - Application site erythema [Recovered/Resolved]
  - Application site vesicles [Recovering/Resolving]
  - Burns second degree [Recovered/Resolved]
  - Application site pain [Recovered/Resolved]
  - Intentional product misuse [Unknown]
  - Drug administration error [Unknown]
  - Product storage error [Unknown]

NARRATIVE: CASE EVENT DATE: 20160310
